FAERS Safety Report 9407717 (Version 1)
Quarter: 2013Q3

REPORT INFORMATION
  Report Type: Spontaneous
  Country: GB (occurrence: GB)
  Receive Date: 20130718
  Receipt Date: 20130718
  Transmission Date: 20140515
  Serious: Yes (Other)
  Sender: FDA-Public Use
  Company Number: GB-009507513-1307GBR009724

PATIENT
  Age: 31 Year
  Sex: Male
  Weight: 64 kg

DRUGS (2)
  1. PROPECIA 1MG FILM-COATED TABLET [Suspect]
     Indication: ALOPECIA
     Dosage: 1 DF, QD
     Route: 048
     Dates: start: 20130524, end: 20130620
  2. MIRTAZAPINE [Concomitant]
     Indication: ANXIETY
     Dosage: 15 MG, UNK
     Route: 048
     Dates: start: 2011

REACTIONS (3)
  - Condition aggravated [Recovered/Resolved]
  - Ejaculation failure [Recovered/Resolved]
  - Libido decreased [Recovered/Resolved]
